FAERS Safety Report 11096507 (Version 1)
Quarter: 2015Q2

REPORT INFORMATION
  Report Type: Spontaneous
  Country: US (occurrence: US)
  Receive Date: 20150507
  Receipt Date: 20150507
  Transmission Date: 20150821
  Serious: Yes (Other)
  Sender: FDA-Public Use
  Company Number: US-JNJFOC-20150500234

PATIENT
  Sex: Female

DRUGS (3)
  1. XARELTO [Suspect]
     Active Substance: RIVAROXABAN
     Indication: PRODUCT USED FOR UNKNOWN INDICATION
     Route: 048
  2. VENTAVIS [Suspect]
     Active Substance: ILOPROST
     Indication: PRODUCT USED FOR UNKNOWN INDICATION
     Route: 065
  3. ADEMPAS [Suspect]
     Active Substance: RIOCIGUAT
     Indication: PULMONARY HYPERTENSION
     Route: 048
     Dates: start: 20150404

REACTIONS (2)
  - Procedural haemorrhage [Unknown]
  - Oral surgery [Unknown]

NARRATIVE: CASE EVENT DATE: 2015
